FAERS Safety Report 9190665 (Version 1)
Quarter: 2013Q1

REPORT INFORMATION
  Report Type: Spontaneous
  Country: BE (occurrence: BE)
  Receive Date: 20130326
  Receipt Date: 20130326
  Transmission Date: 20140127
  Serious: Yes (Other)
  Sender: FDA-Public Use
  Company Number: BE-JNJFOC-20130311461

PATIENT
  Sex: Female

DRUGS (4)
  1. INFLIXIMAB, RECOMBINANT [Suspect]
     Indication: AMYLOIDOSIS
     Route: 042
  2. INFLIXIMAB, RECOMBINANT [Suspect]
     Indication: CROHN^S DISEASE
     Route: 042
  3. CORTICOSTEROIDS [Suspect]
     Indication: CROHN^S DISEASE
     Route: 065
  4. CORTICOSTEROIDS [Suspect]
     Indication: AMYLOIDOSIS
     Route: 065

REACTIONS (5)
  - Anaphylactic reaction [Unknown]
  - Intestinal fistula [Unknown]
  - Perineal fistula [Unknown]
  - Fistula [Unknown]
  - Off label use [Unknown]
